FAERS Safety Report 9423873 (Version 1)
Quarter: 2013Q3

REPORT INFORMATION
  Report Type: Report from Study
  Country: CN (occurrence: CN)
  Receive Date: 20130729
  Receipt Date: 20130729
  Transmission Date: 20140515
  Serious: Yes (Other)
  Sender: FDA-Public Use
  Company Number: CN-ROCHE-1004149

PATIENT
  Sex: Male
  Weight: 52 kg

DRUGS (6)
  1. CELLCEPT [Suspect]
     Indication: RENAL TRANSPLANT
     Route: 048
     Dates: start: 20040611, end: 200502
  2. CELLCEPT [Suspect]
     Indication: LIVER TRANSPLANT
     Route: 048
     Dates: start: 201108
  3. TACROLIMUS [Suspect]
     Indication: LIVER TRANSPLANT
     Route: 048
  4. PROGRAF [Concomitant]
     Indication: RENAL TRANSPLANT
     Route: 048
     Dates: start: 20040611
  5. MEDROL [Concomitant]
     Indication: RENAL TRANSPLANT
     Route: 048
     Dates: start: 20040611
  6. ADEFOVIR [Concomitant]
     Indication: HEPATITIS B
     Route: 048

REACTIONS (7)
  - Transplant rejection [Unknown]
  - White blood cell count decreased [Recovered/Resolved]
  - Hepatitis B antibody positive [Not Recovered/Not Resolved]
  - Constipation [Not Recovered/Not Resolved]
  - Abnormal faeces [Not Recovered/Not Resolved]
  - Gastrointestinal hypomotility [Not Recovered/Not Resolved]
  - Nasopharyngitis [Not Recovered/Not Resolved]
